FAERS Safety Report 7901241-9 (Version None)
Quarter: 2011Q4

REPORT INFORMATION
  Report Type: 
  Country: None (occurrence: None)
  Receive Date: 20111108
  Receipt Date: 20111030
  Transmission Date: 20120403
  Serious: Yes (Death)
  Sender: FDA-Public Use
  Company Number: PHHY2011ES97065

PATIENT

DRUGS (1)
  1. EVEROLIMUS [Suspect]
     Indication: TRANSPLANT
     Dosage: UNK UKN, UNK
     Dates: start: 20060701

REACTIONS (3)
  - HEPATITIS C [None]
  - HEPATIC CIRRHOSIS [None]
  - ANAEMIA [None]
